FAERS Safety Report 6229687-8 (Version None)
Quarter: 2009Q2

REPORT INFORMATION
  Report Type: 
  Country: None (occurrence: None)
  Receive Date: 20090609
  Receipt Date: 20080718
  Transmission Date: 20091009
  Serious: Yes (Other)
  Sender: FDA-Public Use
  Company Number: 002#1#2008-00589

PATIENT
  Sex: Male
  Weight: 56.246 kg

DRUGS (6)
  1. ROTIGOTINE [Suspect]
     Indication: PARKINSON'S DISEASE
     Dosage: 6 MG QD, DAILY DOSE: 6 MILLIGRAM/ 24 HOURS; UNIT DOSE: 6 MILLIGRAM/ 24HOURS TRANSDERMAL
     Route: 062
     Dates: start: 20071101, end: 20080501
  2. PRAMIPEXOLE DIHYDROCHLORIDE [Suspect]
     Indication: PARKINSON'S DISEASE
     Dosage: 0.5 MG QD UNKNOWN
  3. STALEVO 100 [Concomitant]
  4. AMANTADINE HCL [Concomitant]
  5. CARBIDOPA AND LEVODOPA [Concomitant]
  6. PREDNISONE [Concomitant]

REACTIONS (2)
  - DYSKINESIA [None]
  - NECK PAIN [None]
